FAERS Safety Report 9817634 (Version 1)
Quarter: 2013Q4

REPORT INFORMATION
  Report Type: Spontaneous
  Country: US (occurrence: None)
  Receive Date: 20131223
  Receipt Date: 20131223
  Transmission Date: 20140711
  Serious: No
  Sender: FDA-Public Use
  Company Number: 219041

PATIENT
  Age: 66 Year
  Sex: Male

DRUGS (4)
  1. PICATO [Suspect]
     Indication: ACTINIC KERATOSIS
     Dosage: (1 IN 1 D), TOPICAL
     Route: 061
     Dates: start: 20120915, end: 20120916
  2. SIMVASTATIN (SIMVASTATIN) (20 MG) [Concomitant]
  3. RAMAPRIL (RAMIPRIL) (5 MG) [Concomitant]
  4. ZYRTEC (CETIRIZINE HYDROCHLORIDE) [Concomitant]

REACTIONS (9)
  - Application site erythema [None]
  - Application site pain [None]
  - Application site pain [None]
  - Application site scab [None]
  - Application site pruritus [None]
  - Sleep disorder [None]
  - Off label use [None]
  - Drug administered at inappropriate site [None]
  - Incorrect dose administered [None]
